FAERS Safety Report 6122385-0 (Version None)
Quarter: 2009Q1

REPORT INFORMATION
  Report Type: 
  Country: None (occurrence: None)
  Receive Date: 20090318
  Receipt Date: 20090120
  Transmission Date: 20090719
  Serious: No
  Sender: FDA-Public Use
  Company Number: US-ASTRAZENECA-2009UW01610

PATIENT
  Sex: Female

DRUGS (6)
  1. SYMBICORT [Suspect]
     Indication: ASTHMA
     Dosage: 160/4.5 UG, 2 PUFFS, TWICE DAILY
     Route: 055
     Dates: start: 20080901
  2. DOXEPIN HCL [Concomitant]
  3. METHADONE HCL [Concomitant]
  4. PLAVIX [Concomitant]
  5. PROZAC [Concomitant]
  6. MIRALAX [Concomitant]

REACTIONS (1)
  - DYSPNOEA [None]
